FAERS Safety Report 6197397-1 (Version None)
Quarter: 2009Q2

REPORT INFORMATION
  Report Type: 
  Country: None (occurrence: None)
  Receive Date: 20090521
  Receipt Date: 20090512
  Transmission Date: 20091009
  Serious: Yes (Other)
  Sender: FDA-Public Use
  Company Number: PHHY2009BR18498

PATIENT
  Sex: Female

DRUGS (2)
  1. RITALIN [Suspect]
     Dosage: 10 MG
     Route: 048
  2. RITALIN LA [Suspect]
     Route: 048

REACTIONS (3)
  - DRUG INEFFECTIVE [None]
  - STRESS [None]
  - SUICIDE ATTEMPT [None]
